APPROVED DRUG PRODUCT: BETAMETHASONE DIPROPIONATE
Active Ingredient: BETAMETHASONE DIPROPIONATE
Strength: EQ 0.05% BASE
Dosage Form/Route: CREAM, AUGMENTED;TOPICAL
Application: A076603 | Product #001
Applicant: CHARTWELL MOLECULAR HOLDINGS LLC
Approved: Jan 23, 2004 | RLD: No | RS: No | Type: DISCN